FAERS Safety Report 16100146 (Version 1)
Quarter: 2019Q1

REPORT INFORMATION
  Report Type: Spontaneous
  Country: US (occurrence: US)
  Receive Date: 20190321
  Receipt Date: 20190321
  Transmission Date: 20190418
  Serious: Yes (Hospitalization)
  Sender: FDA-Public Use
  Company Number: US-ASTRAZENECA-2019SE42794

PATIENT
  Age: 908 Month
  Sex: Female
  Weight: 70.3 kg

DRUGS (8)
  1. OXYGEN. [Concomitant]
     Active Substance: OXYGEN
     Indication: DYSPNOEA
     Dosage: 2 L WHEN UP, 1 L WHEN SITTING, ALSO SLEEP WITH THE OXYGEN
     Route: 045
     Dates: start: 201712
  2. BEVESPI AEROSPHERE [Suspect]
     Active Substance: FORMOTEROL FUMARATE\GLYCOPYRROLATE
     Indication: CHRONIC OBSTRUCTIVE PULMONARY DISEASE
     Dosage: 9/4.8 UG, TWO INHALATIONS, TWICE DAILY
     Route: 055
     Dates: start: 2017
  3. ALENDRONATE [Concomitant]
     Active Substance: ALENDRONATE SODIUM
     Indication: OSTEOPOROSIS
     Route: 048
  4. CALCIUM [Concomitant]
     Active Substance: CALCIUM
     Indication: OSTEOPOROSIS
     Route: 048
  5. PROBIOTIC TRUNATURE [Concomitant]
     Dosage: DAILY
     Route: 048
     Dates: start: 201712
  6. TYLENOL [Concomitant]
     Active Substance: ACETAMINOPHEN
     Indication: BACK DISORDER
     Dosage: 500.0MG UNKNOWN
     Route: 048
  7. VENTOLIN [Concomitant]
     Active Substance: ALBUTEROL SULFATE
     Indication: EMERGENCY CARE
     Dosage: AS REQUIRED
     Route: 055
  8. ALEVE [Concomitant]
     Active Substance: NAPROXEN SODIUM
     Indication: BACK DISORDER
     Dosage: 220.0MG UNKNOWN
     Route: 048

REACTIONS (4)
  - Intentional product misuse [Not Recovered/Not Resolved]
  - Wrong technique in product usage process [Not Recovered/Not Resolved]
  - Pneumonia [Recovered/Resolved]
  - Device issue [Unknown]

NARRATIVE: CASE EVENT DATE: 201712
